FAERS Safety Report 24010890 (Version 1)
Quarter: 2024Q2

REPORT INFORMATION
  Report Type: Spontaneous
  Country: US (occurrence: None)
  Receive Date: 20240624
  Receipt Date: 20240624
  Transmission Date: 20240716
  Serious: No
  Sender: FDA-Public Use
  Company Number: None

PATIENT
  Age: 54 Year
  Sex: Male
  Weight: 101 kg

DRUGS (3)
  1. SOTATERCEPT [Suspect]
     Active Substance: SOTATERCEPT
     Indication: Pulmonary arterial hypertension
     Dosage: OTHER FREQUENCY : EVERY 3 WEEKS;?
     Route: 058
     Dates: start: 20240617
  2. Ambrisentan 10 mg tablet daily [Concomitant]
     Dates: start: 20201130
  3. Tadalafil 40 mg daily [Concomitant]
     Dates: start: 20211101

REACTIONS (1)
  - Nausea [None]

NARRATIVE: CASE EVENT DATE: 20240624
